FAERS Safety Report 8200576 (Version 2)
Quarter: 2014Q1

REPORT INFORMATION
  Report Type: Spontaneous
  Country: US (occurrence: US)
  Receive Date: 20111026
  Receipt Date: 20140130
  Transmission Date: 20141002
  Serious: Yes (Other)
  Sender: FDA-Public Use
  Company Number: US-GLAXOSMITHKLINE-A0950073A

PATIENT
  Age: 60 Year
  Sex: Female

DRUGS (4)
  1. FLOLAN [Suspect]
     Indication: PULMONARY ARTERIAL HYPERTENSION
     Dosage: 14NGKM PER DAY
     Route: 042
     Dates: start: 20110705
  2. REVATIO [Concomitant]
  3. WARFARIN [Concomitant]
  4. ASPIRIN [Concomitant]

REACTIONS (2)
  - Anaemia [Unknown]
  - Haemorrhage [Unknown]
